FAERS Safety Report 9555571 (Version 1)
Quarter: 2013Q3

REPORT INFORMATION
  Report Type: Spontaneous
  Country: US (occurrence: US)
  Receive Date: 20130926
  Receipt Date: 20130926
  Transmission Date: 20140515
  Serious: Yes (Other)
  Sender: FDA-Public Use
  Company Number: US-SANOFI-AVENTIS-2013SA094762

PATIENT
  Age: 62 Year
  Sex: Female

DRUGS (1)
  1. LANTUS [Suspect]
     Dosage: DOSE:90 UNIT(S)
     Route: 058

REACTIONS (6)
  - Breast mass [Unknown]
  - Gallbladder disorder [Unknown]
  - Appendix disorder [Unknown]
  - Renal cyst [Unknown]
  - Heart rate abnormal [Unknown]
  - Impaired healing [Unknown]
